FAERS Safety Report 16473278 (Version 1)
Quarter: 2019Q2

REPORT INFORMATION
  Report Type: Spontaneous
  Country: US (occurrence: US)
  Receive Date: 20190515
  Receipt Date: 20190515
  Transmission Date: 20190711
  Serious: Yes (Hospitalization)
  Sender: FDA-Public Use
  Company Number: None

PATIENT
  Age: 13 Year
  Sex: Male

DRUGS (4)
  1. ACETAMIN [Concomitant]
     Active Substance: ACETAMINOPHEN
  2. LIDOCAINE GEL [Concomitant]
     Active Substance: LIDOCAINE HYDROCHLORIDE
  3. TAMSULOSIN [Concomitant]
     Active Substance: TAMSULOSIN
  4. ENBREL [Suspect]
     Active Substance: ETANERCEPT
     Indication: PYREXIA
     Dosage: ?          OTHER DOSE:1 SYR;?
     Route: 058
     Dates: start: 20190221

REACTIONS (1)
  - Nephrolithiasis [None]

NARRATIVE: CASE EVENT DATE: 20190502
